FAERS Safety Report 6912539-5 (Version None)
Quarter: 2010Q3

REPORT INFORMATION
  Report Type: 
  Country: None (occurrence: None)
  Receive Date: 20100806
  Receipt Date: 20080617
  Transmission Date: 20110219
  Serious: No
  Sender: FDA-Public Use
  Company Number: US-PFIZER INC-2008034766

PATIENT
  Age: 78 Year
  Sex: Female
  Weight: 86.18 kg

DRUGS (3)
  1. DETROL LA [Suspect]
     Indication: HYPERTONIC BLADDER
     Route: 048
  2. TEGRETOL [Concomitant]
     Route: 048
  3. DILANTIN [Concomitant]
     Route: 048

REACTIONS (1)
  - DRUG INEFFECTIVE [None]
